FAERS Safety Report 5672184-9 (Version None)
Quarter: 2008Q1

REPORT INFORMATION
  Report Type: 
  Country: None (occurrence: None)
  Receive Date: 20080319
  Receipt Date: 20080307
  Transmission Date: 20080703
  Serious: Yes (Hospitalization, Disabling)
  Sender: FDA-Public Use
  Company Number: CA-ROCHE-552458

PATIENT
  Age: 63 Year
  Sex: Male

DRUGS (1)
  1. FUZEON [Suspect]
     Dosage: FORM: VIAL, FIRST SHIPMENT OF ENFUVIRTIDE SENT ON 2-JUN-2004
     Route: 058
     Dates: start: 20040601

REACTIONS (1)
  - PARKINSON'S DISEASE [None]
